FAERS Safety Report 12708163 (Version 4)
Quarter: 2017Q2

REPORT INFORMATION
  Report Type: Report from Study
  Country: BR (occurrence: BR)
  Receive Date: 20160901
  Receipt Date: 20170417
  Transmission Date: 20170830
  Serious: Yes (Death, Hospitalization)
  Sender: FDA-Public Use
  Company Number: PHHY2016BR118656

PATIENT
  Sex: Female
  Weight: 62 kg

DRUGS (2)
  1. SANDOSTATIN LAR DEPOT [Suspect]
     Active Substance: OCTREOTIDE ACETATE
     Indication: ACROMEGALY
     Dosage: 20 MG, QMO
     Route: 065
     Dates: start: 201108, end: 201701
  2. CABERGOLINA [Concomitant]
     Active Substance: CABERGOLINE
     Indication: ACROMEGALY
     Dosage: UNK
     Route: 065

REACTIONS (11)
  - Respiratory failure [Fatal]
  - Pericardial disease [Recovering/Resolving]
  - Metastases to central nervous system [Fatal]
  - Malaise [Recovering/Resolving]
  - Metastases to bone [Fatal]
  - Asthenia [Unknown]
  - Pericardial effusion [Recovering/Resolving]
  - Metastases to liver [Fatal]
  - Lung neoplasm malignant [Fatal]
  - Metastasis [Fatal]
  - Nausea [Unknown]
